FAERS Safety Report 9925950 (Version 1)
Quarter: 2014Q1

REPORT INFORMATION
  Report Type: Spontaneous
  Country: US (occurrence: US)
  Receive Date: 20140226
  Receipt Date: 20140226
  Transmission Date: 20141002
  Serious: No
  Sender: FDA-Public Use
  Company Number: US-BRACCO-009363

PATIENT
  Sex: Male

DRUGS (1)
  1. ISOVUE 300 [Suspect]
     Indication: SPINAL MYELOGRAM
     Route: 037
     Dates: start: 20130415, end: 20130415

REACTIONS (1)
  - Wrong drug administered [Recovered/Resolved]
